FAERS Safety Report 19026201 (Version 3)
Quarter: 2021Q2

REPORT INFORMATION
  Report Type: Spontaneous
  Country: US (occurrence: US)
  Receive Date: 20210318
  Receipt Date: 20210423
  Transmission Date: 20210717
  Serious: Yes (Other)
  Sender: FDA-Public Use
  Company Number: US-PURDUE PHARMA-USA-2021-0233710

PATIENT
  Age: 65 Year
  Sex: Male
  Weight: 106.58 kg

DRUGS (3)
  1. MORPHINE [Concomitant]
     Active Substance: MORPHINE
     Indication: POST LAMINECTOMY SYNDROME
     Dosage: 0.55 MG, DAILY
     Route: 037
  2. HYDROMORPHONE TABLETS [Suspect]
     Active Substance: HYDROMORPHONE
     Indication: PAIN
     Dosage: 1/2?1 [4 MG], Q4H PRN
     Route: 048
     Dates: start: 20210212, end: 20210406
  3. HYDROMORPHONE TABLETS [Suspect]
     Active Substance: HYDROMORPHONE
     Indication: POST LAMINECTOMY SYNDROME

REACTIONS (5)
  - Arthropathy [Unknown]
  - Therapeutic product effect decreased [Recovered/Resolved]
  - Knee operation [Unknown]
  - Intentional product misuse [Unknown]
  - Spinal operation [Unknown]

NARRATIVE: CASE EVENT DATE: 20210212
